FAERS Safety Report 17839235 (Version 1)
Quarter: 2020Q2

REPORT INFORMATION
  Report Type: Spontaneous
  Country: US (occurrence: US)
  Receive Date: 20200528
  Receipt Date: 20200528
  Transmission Date: 20200714
  Serious: Yes (Hospitalization)
  Sender: FDA-Public Use
  Company Number: None

PATIENT
  Age: 62 Year
  Sex: Female

DRUGS (2)
  1. AMBRISENTAN 5MG TABLETS 30/BO: 5MG [Suspect]
     Active Substance: AMBRISENTAN
     Indication: CONNECTIVE TISSUE DISORDER
     Route: 048
     Dates: start: 20200408
  2. AMBRISENTAN 5MG TABLETS 30/BO: 5MG [Suspect]
     Active Substance: AMBRISENTAN
     Indication: PULMONARY ARTERIAL HYPERTENSION
     Route: 048
     Dates: start: 20200408

REACTIONS (6)
  - Dizziness [None]
  - Fluid overload [None]
  - Gastrointestinal disorder [None]
  - Heart rate increased [None]
  - Oedema peripheral [None]
  - Dyspnoea exertional [None]

NARRATIVE: CASE EVENT DATE: 20200527
